FAERS Safety Report 5474773-3 (Version None)
Quarter: 2007Q4

REPORT INFORMATION
  Report Type: 
  Country: None (occurrence: None)
  Receive Date: 20071002
  Receipt Date: 20070921
  Transmission Date: 20080405
  Serious: Yes (Other)
  Sender: FDA-Public Use
  Company Number: B0359809A

PATIENT
  Sex: Female

DRUGS (3)
  1. SEROXAT [Suspect]
     Indication: DRUG USE FOR UNKNOWN INDICATION
     Route: 065
     Dates: start: 20000501
  2. AMITRIPTYLINE HCL [Concomitant]
     Route: 065
  3. PROPRANOLOL [Concomitant]
     Indication: ANXIETY
     Route: 065

REACTIONS (14)
  - AGGRESSION [None]
  - ANXIETY [None]
  - COLD SWEAT [None]
  - DIZZINESS [None]
  - DRUG WITHDRAWAL SYNDROME [None]
  - DYSPHEMIA [None]
  - EYE PAIN [None]
  - HEADACHE [None]
  - INSOMNIA [None]
  - MALAISE [None]
  - MIGRAINE [None]
  - NAUSEA [None]
  - NIGHTMARE [None]
  - SUICIDAL IDEATION [None]
